FAERS Safety Report 20292356 (Version 1)
Quarter: 2022Q1

REPORT INFORMATION
  Report Type: Spontaneous
  Country: JP (occurrence: JP)
  Receive Date: 20220104
  Receipt Date: 20220104
  Transmission Date: 20220423
  Serious: Yes (Death, Other)
  Sender: FDA-Public Use
  Company Number: JP-PFIZER INC-202101266823

PATIENT
  Age: 35 Year
  Sex: Female
  Weight: 52.3 kg

DRUGS (5)
  1. VFEND [Suspect]
     Active Substance: VORICONAZOLE
     Indication: Systemic mycosis
     Dosage: 200 MG, 2X/DAY
     Route: 042
     Dates: start: 20081215, end: 20090103
  2. MEROPENEM [Concomitant]
     Active Substance: MEROPENEM
     Dosage: 1 G, 2X/DAY
     Route: 042
     Dates: start: 20081212, end: 20081230
  3. VANCOMYCIN [Concomitant]
     Active Substance: VANCOMYCIN
     Dosage: 1 G, 2X/DAY
     Route: 042
     Dates: start: 20081212, end: 20090107
  4. CYCLOSPORINE [Concomitant]
     Active Substance: CYCLOSPORINE
     Dosage: 160 MG, DAILY
     Route: 042
     Dates: start: 20081207, end: 20090306
  5. ZOVIRAX [Concomitant]
     Active Substance: ACYCLOVIR
     Dosage: 250 MG, DAILY
     Route: 042
     Dates: start: 20081213, end: 20081226

REACTIONS (4)
  - Acute myeloid leukaemia [Fatal]
  - Drug ineffective [Recovered/Resolved]
  - Bronchopulmonary aspergillosis [Recovered/Resolved]
  - Infection [Recovered/Resolved]

NARRATIVE: CASE EVENT DATE: 20080101
